FAERS Safety Report 13665766 (Version 1)
Quarter: 2017Q2

REPORT INFORMATION
  Report Type: Spontaneous
  Country: CN (occurrence: CN)
  Receive Date: 20170619
  Receipt Date: 20170619
  Transmission Date: 20170830
  Serious: Yes (Hospitalization)
  Sender: FDA-Public Use
  Company Number: CN-EAGLE PHARMACEUTICALS, INC.-CN-2017EAG000058

PATIENT
  Age: 48 Year
  Sex: Female

DRUGS (11)
  1. DOCETAXEL. [Suspect]
     Active Substance: DOCETAXEL
     Dosage: 120 MG (70 MG/M2) CYCLE 2
  2. DOCETAXEL. [Suspect]
     Active Substance: DOCETAXEL
     Dosage: 120 MG (70 MG/M2) CYCLE 3
  3. LOBAPLATIN [Suspect]
     Active Substance: LOBAPLATIN
     Indication: ENDOMETRIAL CANCER METASTATIC
     Dosage: 45 MG (25 MG/M2, CYCLE 5)
  4. ACARBOSE. [Concomitant]
     Active Substance: ACARBOSE
     Indication: TYPE 2 DIABETES MELLITUS
     Dosage: 50 MG, QD
     Route: 065
  5. CISPLATIN. [Suspect]
     Active Substance: CISPLATIN
     Dosage: 90 MG (50 MG/M2, CYCLE 3)
  6. CISPLATIN. [Suspect]
     Active Substance: CISPLATIN
     Dosage: 90 MG (50 MG/M2, CYCLE 4)
  7. CISPLATIN. [Suspect]
     Active Substance: CISPLATIN
     Indication: ENDOMETRIAL CANCER METASTATIC
     Dosage: 90 MG (50 MG/M2, CYCLE 1)
  8. CISPLATIN. [Suspect]
     Active Substance: CISPLATIN
     Dosage: 90 MG (50 MG/M2, CYCLE 2)
  9. DOCETAXEL. [Suspect]
     Active Substance: DOCETAXEL
     Indication: ENDOMETRIAL CANCER METASTATIC
     Dosage: 120 MG (70 MG/M2) CYCLE 1
  10. DOCETAXEL. [Suspect]
     Active Substance: DOCETAXEL
     Dosage: 120 MG (70 MG/M2) CYCLE 4
  11. DOCETAXEL. [Suspect]
     Active Substance: DOCETAXEL
     Dosage: 120 MG (70 MG/M2) CYCLE 5

REACTIONS (1)
  - Retinal toxicity [Not Recovered/Not Resolved]
